FAERS Safety Report 23253225 (Version 1)
Quarter: 2023Q4

REPORT INFORMATION
  Report Type: Spontaneous
  Country: DE (occurrence: DE)
  Receive Date: 20231202
  Receipt Date: 20231202
  Transmission Date: 20240109
  Serious: Yes (Hospitalization, Other)
  Sender: FDA-Public Use
  Company Number: DE-SAMSUNG BIOEPIS-SB-2023-29357

PATIENT
  Age: 74 Year
  Sex: Male
  Weight: 90 kg

DRUGS (7)
  1. DOCETAXEL [Suspect]
     Active Substance: DOCETAXEL\DOCETAXEL ANHYDROUS
     Indication: Oesophageal adenocarcinoma
     Dosage: 105 MILLIGRAM (50 MG/M2, IV D1/D152/D29 AND D43 PRE AND POST OP)
     Route: 042
     Dates: start: 20231018, end: 20231018
  2. LEUCOVORIN [Suspect]
     Active Substance: LEUCOVORIN\LEUCOVORIN CALCIUM
     Indication: Oesophageal adenocarcinoma
     Dosage: 420 MILLIGRAM (200 MG/M2, IV D1/D152/D29 AND D43 PRE AND POST OP)
     Route: 042
     Dates: start: 20231018, end: 20231018
  3. LEUCOVORIN [Suspect]
     Active Substance: LEUCOVORIN\LEUCOVORIN CALCIUM
     Dosage: UNK
     Dates: start: 20231018, end: 20231018
  4. OXALIPLATIN [Suspect]
     Active Substance: OXALIPLATIN
     Indication: Oesophageal adenocarcinoma
     Dosage: 178 MILLIGRAM (85 MG/M2, IV D1/D152/D29 PRE AND POST OP)
     Route: 042
     Dates: start: 20231018, end: 20231018
  5. FLUOROURACIL [Suspect]
     Active Substance: FLUOROURACIL
     Indication: Oesophageal adenocarcinoma
     Dosage: 5460 MILLIGRAM (2600 MG/M2, IV D1/D152/D29 AND D43 PRE AND POST OP)
     Route: 042
     Dates: start: 20231018, end: 20231019
  6. ONTRUZANT [Suspect]
     Active Substance: TRASTUZUMAB-DTTB
     Indication: Oesophageal adenocarcinoma
     Dosage: 720 MILLIGRAM (D1: 8 MG/KG; 6 MG/KG IV D22/D43 PRE AND POST OP, AFTERWARDS 6 MG/KG IV D1 Q3W)
     Route: 042
     Dates: start: 20231018, end: 20231018
  7. PEMBROLIZUMAB [Suspect]
     Active Substance: PEMBROLIZUMAB
     Indication: Oesophageal adenocarcinoma
     Dosage: 200 MILLIGRAM (D1/D22/D43 PRE AND POST OP, AFTERWARDS D1 Q3W)
     Route: 042
     Dates: start: 20231018, end: 20231018

REACTIONS (4)
  - Acute kidney injury [Not Recovered/Not Resolved]
  - Diarrhoea [Not Recovered/Not Resolved]
  - Abdominal infection [Not Recovered/Not Resolved]
  - Product use in unapproved indication [Unknown]

NARRATIVE: CASE EVENT DATE: 20231026
